FAERS Safety Report 19416317 (Version 2)
Quarter: 2021Q2

REPORT INFORMATION
  Report Type: Report from Study
  Country: US (occurrence: US)
  Receive Date: 20210614
  Receipt Date: 20210615
  Transmission Date: 20210717
  Serious: Yes (Other)
  Sender: FDA-Public Use
  Company Number: US-PROGENICS PHARMACEUTICALS/LANTHEUS HOLDINGS-LMI-2021-00525

PATIENT
  Age: 27 Year
  Sex: Male
  Weight: 49.9 kg

DRUGS (14)
  1. AZEDRA [Suspect]
     Active Substance: IOBENGUANE I-131
     Dosage: 470 MILLICURIE (FIRST THERAPEUTIC DOSE)
     Dates: start: 20100510, end: 20100510
  2. ATENOLOL. [Concomitant]
     Active Substance: ATENOLOL
     Indication: HYPERTENSION
     Dosage: 12.5 MILLIGRAM, BID
  3. FLOMAX [Concomitant]
     Active Substance: TAMSULOSIN HYDROCHLORIDE
     Indication: PRODUCT USED FOR UNKNOWN INDICATION
     Dosage: 0.4 MILLIGRAM, EVENING
     Route: 048
  4. AZEDRA [Suspect]
     Active Substance: IOBENGUANE I-131
     Indication: PRODUCT USED FOR UNKNOWN INDICATION
     Dosage: 5.37 MILLICURIE (DOSIMETRIC DOSE)
     Dates: start: 20100421, end: 20100421
  5. AZEDRA [Suspect]
     Active Substance: IOBENGUANE I-131
     Dosage: 475 MILLICURIE (SECOND THERAPEUTIC DOSE)
     Dates: start: 20100830, end: 20100830
  6. DIBENZYLINE [Concomitant]
     Active Substance: PHENOXYBENZAMINE HYDROCHLORIDE
     Dosage: 10 MILLIGRAM, QD
  7. NORCO [Concomitant]
     Active Substance: ACETAMINOPHEN\HYDROCODONE BITARTRATE
     Indication: PRODUCT USED FOR UNKNOWN INDICATION
     Dosage: 1?2 TABLETS EVERY 4 HOURS AS NEEDED
     Route: 048
  8. FERROUS SULFATE. [Concomitant]
     Active Substance: FERROUS SULFATE
     Indication: PRODUCT USED FOR UNKNOWN INDICATION
     Dosage: 325 MILLIGRAM (65 MG OF ELEMENTAL IRON)
     Route: 048
  9. NEURONTIN [Concomitant]
     Active Substance: GABAPENTIN
     Indication: PRODUCT USED FOR UNKNOWN INDICATION
     Dosage: 600 MILLIGRAM, QID
     Route: 048
  10. MS CONTIN [Concomitant]
     Active Substance: MORPHINE SULFATE
     Indication: PRODUCT USED FOR UNKNOWN INDICATION
     Dosage: 60 MILLIGRAM, Q 12 HR
     Route: 048
  11. PRAZOSIN. [Concomitant]
     Active Substance: PRAZOSIN
     Indication: HYPERTENSION
     Dosage: 0.4 MILLIGRAM, QD
  12. MSIR [Concomitant]
     Active Substance: MORPHINE SULFATE
     Indication: PRODUCT USED FOR UNKNOWN INDICATION
     Dosage: 30 MILLIGRAM, Q 4 HR
  13. AZEDRA [Suspect]
     Active Substance: IOBENGUANE I-131
     Dosage: UNK
  14. DIBENZYLINE [Concomitant]
     Active Substance: PHENOXYBENZAMINE HYDROCHLORIDE
     Indication: HYPERTENSION
     Dosage: 12.5 MILLIGRAM, TID
     Route: 048

REACTIONS (1)
  - Sarcomatoid carcinoma [Not Recovered/Not Resolved]

NARRATIVE: CASE EVENT DATE: 20200805
